FAERS Safety Report 4514693-1 (Version None)
Quarter: 2004Q4

REPORT INFORMATION
  Report Type: 
  Country: None (occurrence: None)
  Receive Date: 20041126
  Receipt Date: 20041108
  Transmission Date: 20050328
  Serious: No
  Sender: FDA-Public Use
  Company Number: 9251

PATIENT

DRUGS (2)
  1. VINCRISTINE [Suspect]
  2. ITRACONAZOLE [Suspect]
     Indication: FUNGAL INFECTION

REACTIONS (1)
  - PROGRESSIVE MULTIFOCAL LEUKOENCEPHALOPATHY [None]
